FAERS Safety Report 22186721 (Version 1)
Quarter: 2023Q2

REPORT INFORMATION
  Report Type: Spontaneous
  Country: GB (occurrence: GB)
  Receive Date: 20230407
  Receipt Date: 20230407
  Transmission Date: 20230721
  Serious: Yes (Other)
  Sender: FDA-Public Use
  Company Number: GB-MHRA-MED-202304030139157290-WNVHC

PATIENT
  Age: 22 Year
  Sex: Male
  Weight: 88 kg

DRUGS (1)
  1. PREGABALIN [Suspect]
     Active Substance: PREGABALIN
     Indication: Sleep disorder
     Dosage: 150 MILLIGRAM, QD (150 MG 10 CAPSULE A DAY)
     Route: 065
     Dates: start: 20230303

REACTIONS (2)
  - Insomnia [Not Recovered/Not Resolved]
  - Medication error [Unknown]

NARRATIVE: CASE EVENT DATE: 20230303
